FAERS Safety Report 16441637 (Version 1)
Quarter: 2019Q2

REPORT INFORMATION
  Report Type: Spontaneous
  Country: FR (occurrence: FR)
  Receive Date: 20190617
  Receipt Date: 20190617
  Transmission Date: 20190711
  Serious: Yes (Hospitalization)
  Sender: FDA-Public Use
  Company Number: FR-009507513-1906FRA004206

PATIENT
  Age: 34 Year
  Sex: Female

DRUGS (3)
  1. GONADOTROPIN, CHORIONIC [Suspect]
     Active Substance: CHORIOGONADOTROPIN ALFA
     Indication: IN VITRO FERTILISATION
     Dosage: 5000 INTERNATIONAL UNIT, QD
     Route: 030
     Dates: start: 20161212, end: 20161212
  2. GONAL-F [Suspect]
     Active Substance: FOLLITROPIN
     Indication: IN VITRO FERTILISATION
     Dosage: UNK
     Route: 058
     Dates: start: 20161202, end: 20161211
  3. SYNAREL [Suspect]
     Active Substance: NAFARELIN ACETATE
     Indication: IN VITRO FERTILISATION
     Dosage: UNK
     Route: 045
     Dates: start: 20161202, end: 20161211

REACTIONS (2)
  - Ovarian hyperstimulation syndrome [Recovered/Resolved with Sequelae]
  - Adnexal torsion [Recovered/Resolved with Sequelae]

NARRATIVE: CASE EVENT DATE: 20170118
